FAERS Safety Report 12883818 (Version 2)
Quarter: 2020Q3

REPORT INFORMATION
  Report Type: Spontaneous
  Country: PT (occurrence: PT)
  Receive Date: 20161026
  Receipt Date: 20200722
  Transmission Date: 20201102
  Serious: Yes (Other)
  Sender: FDA-Public Use
  Company Number: PT-BAXTER-2016BAX053763

PATIENT
  Age: 35 Year
  Sex: Female

DRUGS (11)
  1. DOXORUBICIN [Suspect]
     Active Substance: DOXORUBICIN
     Indication: ACUTE MYELOID LEUKAEMIA
     Dosage: ODD COURSES (1,3,5,7), DAY4
     Route: 065
     Dates: start: 201305, end: 201311
  2. UROMITEXAN 400 MG/4ML [Suspect]
     Active Substance: MESNA
     Indication: ACUTE MYELOID LEUKAEMIA
     Dosage: ODD COURSES (1,3,5,7) CYCLIC (DAYS 1 TO 3)
     Route: 065
     Dates: start: 201305, end: 201311
  3. ENDOXAN PO PARA SOLUCAO INJECTAVEL 1000 MG [Suspect]
     Active Substance: CYCLOPHOSPHAMIDE
     Indication: ACUTE MYELOID LEUKAEMIA
     Dosage: ODD COURSES (1,3,5,7) TWO TIMES A DAY, 12/12HOUR, DAYS 1 TO 3
     Route: 065
     Dates: start: 201305, end: 201311
  4. METHYLPREDNISOLONE. [Suspect]
     Active Substance: METHYLPREDNISOLONE
     Indication: ACUTE MYELOID LEUKAEMIA
     Dosage: RECEIVED 8 CYCLES
     Route: 065
     Dates: start: 201305, end: 201311
  5. CYTARABIN [Suspect]
     Active Substance: CYTARABINE
     Indication: ACUTE MYELOID LEUKAEMIA
     Dosage: 3 G/M2, 12/12H, DAYS 2 AND 3
     Route: 065
     Dates: start: 201305, end: 201311
  6. VINCRISTINE [Suspect]
     Active Substance: VINCRISTINE
     Indication: ACUTE MYELOID LEUKAEMIA
     Dosage: ODD COURSES (1,3,5,7), (DAYS 4 AND 11)
     Route: 065
     Dates: start: 201305, end: 201311
  7. DEXAMETHASONE. [Suspect]
     Active Substance: DEXAMETHASONE
     Indication: ACUTE MYELOID LEUKAEMIA
     Dosage: ODD COURSES (1,3,5,7) (DAYS 1 TO 4 AND DAYS 11 TO 14)
     Route: 065
     Dates: start: 201305, end: 201311
  8. FOLINIC ACID [Suspect]
     Active Substance: LEUCOVORIN
     Indication: ACUTE MYELOID LEUKAEMIA
     Dosage: RECEIVED EIGHT CYCLES
     Route: 065
     Dates: start: 201305, end: 201311
  9. METHOTREXATE SODIUM. [Suspect]
     Active Substance: METHOTREXATE SODIUM
     Indication: PROPHYLAXIS
     Dosage: CYCLIC (DAY 2)
     Route: 037
     Dates: start: 201305, end: 201311
  10. METHOTREXATE SODIUM. [Suspect]
     Active Substance: METHOTREXATE SODIUM
     Indication: ACUTE MYELOID LEUKAEMIA
     Dosage: EVEN COURSES (2,4,6,8) 1 GRAM/M2, DAY 1
     Route: 065
     Dates: start: 201305, end: 201311
  11. CYTARABIN [Suspect]
     Active Substance: CYTARABINE
     Indication: PROPHYLAXIS
     Dosage: DAY 7 OR 8
     Route: 037
     Dates: start: 201305, end: 201311

REACTIONS (5)
  - Mucosal inflammation [Unknown]
  - Product use in unapproved indication [Unknown]
  - Off label use [Unknown]
  - Febrile neutropenia [Unknown]
  - Leukaemia recurrent [Unknown]

NARRATIVE: CASE EVENT DATE: 2013
